FAERS Safety Report 12800659 (Version 1)
Quarter: 2016Q3

REPORT INFORMATION
  Report Type: Report from Study
  Country: JP (occurrence: JP)
  Receive Date: 20160930
  Receipt Date: 20160930
  Transmission Date: 20161109
  Serious: Yes (Hospitalization, Other)
  Sender: FDA-Public Use
  Company Number: JP-TAKEDA-2015TUS004041

PATIENT
  Age: 74 Year
  Sex: Female
  Weight: 40 kg

DRUGS (7)
  1. CLARITIN [Concomitant]
     Active Substance: LORATADINE
     Indication: RHINITIS ALLERGIC
     Dosage: 10 MG, QD
     Route: 048
     Dates: start: 20130603
  2. ONEALFA TABLET 1.0 [Concomitant]
     Indication: OSTEOPOROSIS
     Dosage: 1 ?G, QD
     Route: 048
     Dates: start: 20100514
  3. ASPARA-CA [Concomitant]
     Active Substance: CALCIUM ASPARTATE
     Indication: OSTEOPOROSIS
     Dosage: 200 MG, BID
     Route: 048
     Dates: start: 20100514
  4. SPIRIVA [Concomitant]
     Active Substance: TIOTROPIUM BROMIDE MONOHYDRATE
     Indication: EMPHYSEMA
     Dosage: 5 ?G, QD
     Route: 055
     Dates: start: 20080902
  5. OLMETEC [Concomitant]
     Active Substance: OLMESARTAN MEDOXOMIL
     Indication: HYPERTENSION
     Dosage: 20 MG, QD
     Route: 048
     Dates: start: 20130925
  6. FEBUXOSTAT. [Suspect]
     Active Substance: FEBUXOSTAT
     Indication: HYPERURICAEMIA
     Dosage: 10 MG, QD
     Route: 048
     Dates: start: 20130617
  7. KIPRES [Concomitant]
     Active Substance: MONTELUKAST SODIUM
     Indication: ASTHMA
     Dosage: 10 MG, QD
     Route: 048
     Dates: start: 20081128

REACTIONS (3)
  - Colon cancer [Recovered/Resolved]
  - Large intestinal haemorrhage [Recovered/Resolved]
  - Hypertension [Recovered/Resolved]

NARRATIVE: CASE EVENT DATE: 20130925
